FAERS Safety Report 9387904 (Version 1)
Quarter: 2013Q3

REPORT INFORMATION
  Report Type: Spontaneous
  Country: US (occurrence: US)
  Receive Date: 20130708
  Receipt Date: 20130708
  Transmission Date: 20140515
  Serious: No
  Sender: FDA-Public Use
  Company Number: US-BAYER-2013-082808

PATIENT
  Age: 48 Year
  Sex: Female
  Weight: 72.56 kg

DRUGS (2)
  1. ALEVE TABLET [Suspect]
     Indication: HEADACHE
     Dosage: UNK UNK, PRN
     Route: 048
  2. ALEVE TABLET [Suspect]
     Indication: HEADACHE
     Dosage: 4 DF, ONCE
     Route: 048
     Dates: start: 20130701, end: 20130701

REACTIONS (2)
  - Extra dose administered [None]
  - Expired drug administered [None]
